FAERS Safety Report 4296516-1 (Version None)
Quarter: 2004Q1

REPORT INFORMATION
  Report Type: 
  Country: None (occurrence: None)
  Receive Date: 20040217
  Receipt Date: 20030930
  Transmission Date: 20041129
  Serious: Yes (Death, Hospitalization)
  Sender: FDA-Public Use
  Company Number: 12398376

PATIENT
  Age: 8 Decade
  Sex: Male

DRUGS (3)
  1. WARFARIN SODIUM [Suspect]
  2. DIGOXIN [Concomitant]
  3. PHENYTOIN [Concomitant]

REACTIONS (4)
  - FOOD INTERACTION [None]
  - GASTROINTESTINAL HAEMORRHAGE [None]
  - INTERNATIONAL NORMALISED RATIO INCREASED [None]
  - PERICARDIAL HAEMORRHAGE [None]
